FAERS Safety Report 4390377-8 (Version None)
Quarter: 2004Q2

REPORT INFORMATION
  Report Type: 
  Country: None (occurrence: None)
  Receive Date: 20040630
  Receipt Date: 20040616
  Transmission Date: 20050107
  Serious: Yes (Life-Threatening, Hospitalization)
  Sender: FDA-Public Use
  Company Number: 2004-FF-00374FF

PATIENT
  Age: 47 Year
  Sex: Male

DRUGS (4)
  1. VIRAMUNE [Suspect]
     Indication: HIV INFECTION
     Dosage: 200 MG (200 MG) PO  ; 400 MG (200 MG)  PO
     Route: 048
     Dates: start: 20040420, end: 20040509
  2. VIRAMUNE [Suspect]
     Indication: HIV INFECTION
     Dosage: 200 MG (200 MG) PO  ; 400 MG (200 MG)  PO
     Route: 048
     Dates: start: 20040510, end: 20040512
  3. NORVIR [Suspect]
     Indication: HIV INFECTION
     Dosage: 100 MG (100 MG)  PO
     Route: 048
     Dates: start: 20040420, end: 20040512
  4. ATAZANAVIR SULFATE [Suspect]
     Indication: HIV INFECTION
     Dosage: 300 MG (300 MG)  PO
     Route: 048
     Dates: start: 20040420, end: 20040515

REACTIONS (8)
  - ALANINE AMINOTRANSFERASE INCREASED [None]
  - ASPARTATE AMINOTRANSFERASE INCREASED [None]
  - BLOOD BILIRUBIN INCREASED [None]
  - GAMMA-GLUTAMYLTRANSFERASE INCREASED [None]
  - KERATITIS [None]
  - MUCOSAL INFLAMMATION [None]
  - RASH PAPULAR [None]
  - TOXIC SKIN ERUPTION [None]
